FAERS Safety Report 18022999 (Version 2)
Quarter: 2020Q4

REPORT INFORMATION
  Report Type: Spontaneous
  Country: US (occurrence: US)
  Receive Date: 20200715
  Receipt Date: 20201014
  Transmission Date: 20210113
  Serious: No
  Sender: FDA-Public Use
  Company Number: US-ALLERGAN-2024221US

PATIENT
  Sex: Female

DRUGS (5)
  1. BOTOX [Concomitant]
     Active Substance: ONABOTULINUMTOXINA
     Indication: MIGRAINE
     Dosage: UNK, SINGLE
     Dates: start: 2015
  2. UBRELVY [Suspect]
     Active Substance: UBROGEPANT
     Indication: MIGRAINE
     Dosage: 50 MG, PRN
     Route: 048
  3. UBRELVY [Suspect]
     Active Substance: UBROGEPANT
     Dosage: 100 MG, PRN
     Route: 048
  4. KETOROLAC [Concomitant]
     Active Substance: KETOROLAC TROMETHAMINE
     Indication: MIGRAINE
  5. EXCEDRIN MIGRAINE [Concomitant]
     Active Substance: ACETAMINOPHEN\ASPIRIN\CAFFEINE
     Indication: MIGRAINE
     Dosage: UNK
     Route: 048

REACTIONS (2)
  - Wrong technique in product usage process [Unknown]
  - Somnolence [Not Recovered/Not Resolved]
